FAERS Safety Report 18958458 (Version 2)
Quarter: 2021Q3

REPORT INFORMATION
  Report Type: Spontaneous
  Country: US (occurrence: US)
  Receive Date: 20210302
  Receipt Date: 20210806
  Transmission Date: 20211014
  Serious: Yes (Life-Threatening, Hospitalization, Other)
  Sender: FDA-Public Use
  Company Number: US-GLENMARK PHARMACEUTICALS-2021GMK052357

PATIENT
  Age: 41 Year
  Sex: Male

DRUGS (1)
  1. NAPROXEN SODIUM. [Suspect]
     Active Substance: NAPROXEN SODIUM
     Indication: PAIN
     Dosage: UNK
     Route: 065

REACTIONS (6)
  - Haematuria [Unknown]
  - Gingival bleeding [Unknown]
  - Petechiae [Unknown]
  - Epistaxis [Unknown]
  - Haemarthrosis [Unknown]
  - Thrombocytopenia [Recovering/Resolving]
